FAERS Safety Report 12865374 (Version 1)
Quarter: 2016Q4

REPORT INFORMATION
  Report Type: Spontaneous
  Country: US (occurrence: US)
  Receive Date: 20161020
  Receipt Date: 20161020
  Transmission Date: 20170207
  Serious: Yes (Other)
  Sender: FDA-Public Use
  Company Number: US-WARNER CHILCOTT, LLC-1058554

PATIENT
  Sex: Female

DRUGS (1)
  1. ESTRACE [Suspect]
     Active Substance: ESTRADIOL
     Route: 067

REACTIONS (4)
  - Vulvovaginal mycotic infection [Unknown]
  - Kidney infection [Unknown]
  - Bacterial vaginosis [Unknown]
  - Cystitis [Unknown]
